FAERS Safety Report 13437979 (Version 1)
Quarter: 2017Q2

REPORT INFORMATION
  Report Type: Spontaneous
  Country: DE (occurrence: DE)
  Receive Date: 20170413
  Receipt Date: 20170413
  Transmission Date: 20170830
  Serious: Yes (Other)
  Sender: FDA-Public Use
  Company Number: DE-ASTELLAS-2017US014363

PATIENT
  Sex: Female

DRUGS (1)
  1. AMBISOME [Suspect]
     Active Substance: AMPHOTERICIN B
     Indication: ECHINOCOCCIASIS
     Dosage: UNK, THRICE WEEKLY
     Route: 065
     Dates: start: 2015, end: 201703

REACTIONS (12)
  - Chest pain [Recovering/Resolving]
  - Off label use [Recovered/Resolved]
  - Deafness [Not Recovered/Not Resolved]
  - Ascites [Recovering/Resolving]
  - Bone marrow disorder [Recovering/Resolving]
  - Thirst [Not Recovered/Not Resolved]
  - Alopecia [Recovering/Resolving]
  - Dyspnoea [Recovering/Resolving]
  - Leukopenia [Recovering/Resolving]
  - Vertigo [Recovering/Resolving]
  - Dysphonia [Recovering/Resolving]
  - Fatigue [Not Recovered/Not Resolved]

NARRATIVE: CASE EVENT DATE: 2015
